FAERS Safety Report 25425263 (Version 2)
Quarter: 2025Q3

REPORT INFORMATION
  Report Type: Spontaneous
  Country: RU (occurrence: None)
  Receive Date: 20250611
  Receipt Date: 20250802
  Transmission Date: 20251020
  Serious: Yes (Other)
  Sender: ALEXION PHARMACEUTICALS
  Company Number: RU-ASTRAZENECA-202506EAF006607RU

PATIENT
  Sex: Male

DRUGS (1)
  1. PULMICORT TURBUHALER [Suspect]
     Active Substance: BUDESONIDE
     Indication: Cough
     Route: 065

REACTIONS (3)
  - Drug ineffective [Unknown]
  - Adenoidal disorder [Not Recovered/Not Resolved]
  - Off label use [Unknown]
